FAERS Safety Report 25587675 (Version 1)
Quarter: 2025Q3

REPORT INFORMATION
  Report Type: Spontaneous
  Country: IR (occurrence: IR)
  Receive Date: 20250721
  Receipt Date: 20250721
  Transmission Date: 20251021
  Serious: Yes (Hospitalization)
  Sender: NOVARTIS
  Company Number: IR-002147023-NVSC2025IR115646

PATIENT
  Sex: Male

DRUGS (1)
  1. MYFORTIC [Suspect]
     Active Substance: MYCOPHENOLATE SODIUM
     Indication: Product used for unknown indication
     Route: 048

REACTIONS (5)
  - Pancytopenia [Unknown]
  - Conjunctivitis [Unknown]
  - Nausea [Unknown]
  - Hypertension [Unknown]
  - Rash erythematous [Unknown]
